FAERS Safety Report 16036895 (Version 1)
Quarter: 2019Q1

REPORT INFORMATION
  Report Type: Spontaneous
  Country: US (occurrence: US)
  Receive Date: 20190305
  Receipt Date: 20190305
  Transmission Date: 20190418
  Serious: Yes (Other)
  Sender: FDA-Public Use
  Company Number: US-ASTRAZENECA-2019SE32358

PATIENT
  Age: 13 Year
  Sex: Female

DRUGS (3)
  1. CRIZOTINIB [Concomitant]
     Active Substance: CRIZOTINIB
     Route: 048
  2. FAMOTIDINE. [Suspect]
     Active Substance: FAMOTIDINE
     Route: 065
  3. OMEPRAZOLE. [Suspect]
     Active Substance: OMEPRAZOLE
     Route: 048

REACTIONS (2)
  - Obstruction gastric [Unknown]
  - Inflammatory myofibroblastic tumour [Unknown]

NARRATIVE: CASE EVENT DATE: 20180428
